FAERS Safety Report 4967269-6 (Version None)
Quarter: 2006Q2

REPORT INFORMATION
  Report Type: 
  Country: None (occurrence: None)
  Receive Date: 20060403
  Receipt Date: 20060327
  Transmission Date: 20061013
  Serious: Yes (Hospitalization, Other)
  Sender: FDA-Public Use
  Company Number: 2006000474

PATIENT
  Sex: Male
  Weight: 80.7403 kg

DRUGS (5)
  1. LIPITOR (ATORVASTATIN) [Suspect]
     Indication: BLOOD CHOLESTEROL INCREASED
     Dosage: (10 MG)
     Dates: start: 20020101
  2. VIAGRA [Suspect]
     Indication: ERECTILE DYSFUNCTION
  3. LISINOPRIL [Concomitant]
  4. ATENOLOL [Concomitant]
  5. INDOCIN [Concomitant]

REACTIONS (4)
  - BODY HEIGHT DECREASED [None]
  - CORONARY ARTERY OCCLUSION [None]
  - DYSPNOEA EXERTIONAL [None]
  - HEART RATE IRREGULAR [None]
